FAERS Safety Report 4680097-4 (Version None)
Quarter: 2005Q2

REPORT INFORMATION
  Report Type: 
  Country: None (occurrence: None)
  Receive Date: 20050531
  Receipt Date: 20050516
  Transmission Date: 20051028
  Serious: Yes (Hospitalization)
  Sender: FDA-Public Use
  Company Number: S05-SWE-01951-01

PATIENT
  Age: 87 Year
  Sex: Female

DRUGS (5)
  1. CIPRAMIL (CITALOPRAM HYDROBROMIDE) [Suspect]
     Indication: MAJOR DEPRESSION
     Dosage: 20 MG QD PO
     Route: 048
     Dates: start: 20050214, end: 20050219
  2. MODURETIC 5-50 [Suspect]
     Dates: end: 20050101
  3. STILNOCT (ZOLPIDEM TARTRATE) [Concomitant]
  4. OXASCAND (OXAZEPAM) [Concomitant]
  5. ASPIRIN [Concomitant]

REACTIONS (7)
  - BLOOD POTASSIUM ABNORMAL [None]
  - DEMENTIA [None]
  - DEPRESSION [None]
  - DIZZINESS [None]
  - FATIGUE [None]
  - HYPONATRAEMIA [None]
  - NAUSEA [None]
